FAERS Safety Report 14606831 (Version 2)
Quarter: 2020Q2

REPORT INFORMATION
  Report Type: Spontaneous
  Country: US (occurrence: US)
  Receive Date: 20180307
  Receipt Date: 20200422
  Transmission Date: 20200713
  Serious: Yes (Hospitalization, Other)
  Sender: FDA-Public Use
  Company Number: US-PHARMING-PHAUS2018000122

PATIENT

DRUGS (6)
  1. RUCONEST [Suspect]
     Active Substance: HUMAN C1-ESTERASE INHIBITOR
     Indication: HEREDITARY ANGIOEDEMA WITH NORMAL C1 ESTERASE INHIBITOR
     Dosage: 3350 IU, EVERY OTHER DAY
     Route: 042
     Dates: start: 20151009
  2. RUCONEST [Suspect]
     Active Substance: HUMAN C1-ESTERASE INHIBITOR
     Dosage: UNK
     Dates: start: 20140618
  3. IRON [Concomitant]
     Active Substance: IRON
     Indication: THALASSAEMIA ALPHA
  4. MORPHINE [Concomitant]
     Active Substance: MORPHINE
     Dosage: 30 MILLIGRAM, EVERY 8 HOURS
     Route: 048
  5. TPN [Concomitant]
     Active Substance: AMINO ACIDS\DEXTROSE\ELECTROLYTES NOS\SOYBEAN OIL
     Indication: IMPAIRED GASTRIC EMPTYING
  6. RUCONEST [Suspect]
     Active Substance: HUMAN C1-ESTERASE INHIBITOR
     Dosage: 1 DF, SINGLE
     Route: 042
     Dates: start: 20180219, end: 20180219

REACTIONS (5)
  - Cerebrovascular accident [Unknown]
  - Balance disorder [Unknown]
  - Memory impairment [Unknown]
  - Hereditary angioedema [Recovered/Resolved]
  - Intentional product use issue [Recovered/Resolved]

NARRATIVE: CASE EVENT DATE: 20180219
